FAERS Safety Report 5621068-0 (Version None)
Quarter: 2008Q1

REPORT INFORMATION
  Report Type: 
  Country: None (occurrence: None)
  Receive Date: 20080208
  Receipt Date: 20080131
  Transmission Date: 20080703
  Serious: Yes (Other)
  Sender: FDA-Public Use
  Company Number: FR-PFIZER INC-2008010940

PATIENT
  Age: 63 Year
  Sex: Male

DRUGS (4)
  1. TAHOR [Suspect]
     Indication: HYPERCHOLESTEROLAEMIA
  2. PLAVIX [Interacting]
     Indication: ANGINA PECTORIS
     Dosage: FREQ:TWICE A DAY
  3. AMLODIPINE [Concomitant]
  4. ACETYLSALICYLATE LYSINE [Concomitant]

REACTIONS (6)
  - ANGINA PECTORIS [None]
  - DRUG INTERACTION [None]
  - GENERAL PHYSICAL HEALTH DETERIORATION [None]
  - MUSCLE SPASMS [None]
  - PARAESTHESIA [None]
  - RASH [None]
